FAERS Safety Report 6817519-6 (Version None)
Quarter: 2010Q3

REPORT INFORMATION
  Report Type: 
  Country: None (occurrence: None)
  Receive Date: 20100706
  Receipt Date: 20100702
  Transmission Date: 20110219
  Serious: Yes (Life-Threatening)
  Sender: FDA-Public Use
  Company Number: B0663499A

PATIENT
  Age: 26 Year
  Sex: Female
  Weight: 95 kg

DRUGS (4)
  1. AMPICILLIN SODIUM/SULBACTAM SODIUM [Suspect]
     Indication: PROPHYLAXIS
     Route: 042
     Dates: start: 20100528, end: 20100528
  2. MIDAZOLAM HCL [Concomitant]
     Route: 042
     Dates: start: 20100528, end: 20100528
  3. FENTANYL [Concomitant]
     Route: 042
     Dates: start: 20100528, end: 20100528
  4. PROPOFOL [Concomitant]
     Route: 042
     Dates: start: 20100528, end: 20100528

REACTIONS (3)
  - ERYTHEMA [None]
  - HYPOTENSION [None]
  - TACHYCARDIA [None]
